FAERS Safety Report 19685529 (Version 1)
Quarter: 2021Q3

REPORT INFORMATION
  Report Type: Report from Study
  Country: US (occurrence: US)
  Receive Date: 20210811
  Receipt Date: 20210811
  Transmission Date: 20211014
  Serious: No
  Sender: FDA-Public Use
  Company Number: US-KYOWAKIRIN-2021BKK013679

PATIENT
  Age: 58 Year
  Sex: Female

DRUGS (2)
  1. NOURIANZ [Suspect]
     Active Substance: ISTRADEFYLLINE
     Indication: PARKINSON^S DISEASE
     Dosage: 20 MG
     Route: 065
  2. NOURIANZ [Suspect]
     Active Substance: ISTRADEFYLLINE
     Dosage: 40 MG
     Route: 065

REACTIONS (1)
  - Therapy non-responder [Unknown]
